FAERS Safety Report 9548681 (Version 1)
Quarter: 2013Q3

REPORT INFORMATION
  Report Type: Spontaneous
  Country: US (occurrence: None)
  Receive Date: 20130711
  Receipt Date: 20130711
  Transmission Date: 20140515
  Serious: Yes (Hospitalization)
  Sender: FDA-Public Use
  Company Number: 2012SP033523

PATIENT
  Age: 61 Year
  Sex: Male

DRUGS (3)
  1. INTEGRILIN [Suspect]
     Indication: CORONARY ARTERY DISEASE
     Route: 042
     Dates: start: 20120601
  2. INTEGRILIN [Suspect]
     Indication: CHEST PAIN
     Route: 042
     Dates: start: 20120601
  3. INTEGRILIN [Suspect]
     Indication: MUSCULAR WEAKNESS
     Route: 042
     Dates: start: 20120601

REACTIONS (1)
  - Thrombocytopenia [None]
